FAERS Safety Report 5724282-9 (Version None)
Quarter: 2008Q2

REPORT INFORMATION
  Report Type: 
  Country: None (occurrence: None)
  Receive Date: 20080430
  Receipt Date: 20080421
  Transmission Date: 20081010
  Serious: Yes (Other)
  Sender: FDA-Public Use
  Company Number: US-PFIZER INC-2006114986

PATIENT
  Sex: Female
  Weight: 112.9 kg

DRUGS (1)
  1. CELEBREX [Suspect]
     Indication: PAIN
     Dates: start: 20000408, end: 20030506

REACTIONS (2)
  - HEART VALVE INCOMPETENCE [None]
  - MYOCARDIAL INFARCTION [None]
